FAERS Safety Report 22287665 (Version 4)
Quarter: 2023Q2

REPORT INFORMATION
  Report Type: Other
  Country: BE (occurrence: None)
  Receive Date: 20230505
  Receipt Date: 20230606
  Transmission Date: 20230722
  Serious: Yes (Hospitalization)
  Sender: FDA-Public Use
  Company Number: BE-ROCHE-3243746

PATIENT
  Age: 50 Year
  Sex: Female
  Weight: 75.9 kg

DRUGS (21)
  1. ALECTINIB [Suspect]
     Active Substance: ALECTINIB
     Indication: Lung cancer metastatic
     Dosage: DOSE LAST STUDY DRUG ADMIN PRIOR AE IS 600 MGDOSE LAST STUDY DRUG ADMIN PRIOR SAE IS 600 MG
     Route: 048
     Dates: start: 20220706
  2. ALECTINIB [Suspect]
     Active Substance: ALECTINIB
     Indication: Insomnia
     Route: 048
     Dates: start: 20220707, end: 20220920
  3. OMEPRAZOLE [Concomitant]
     Active Substance: OMEPRAZOLE
     Dosage: MEDICATION INDICATION GASTRIC ACID
     Route: 048
     Dates: end: 20220706
  4. DAFALGAN [Concomitant]
     Active Substance: ACETAMINOPHEN
     Dosage: MEDICATION INDICATION PAIN
     Route: 048
  5. IBUPROFEN [Concomitant]
     Active Substance: IBUPROFEN
     Route: 048
  6. ALIZAPRIDE HYDROCHLORIDE [Concomitant]
     Active Substance: ALIZAPRIDE HYDROCHLORIDE
     Dosage: MEDICATION INDICATION NAUSEA
     Route: 048
  7. MOVICOL [Concomitant]
     Active Substance: POLYETHYLENE GLYCOL 3350\POTASSIUM CHLORIDE\SODIUM BICARBONATE\SODIUM CHLORIDE
     Dosage: MEDICATION INDICATION CONSTIPATION, (MACROGOL 3.350 13,125 G?1 OTHER
     Route: 048
  8. TRAMADOL HYDROCHLORIDE [Concomitant]
     Active Substance: TRAMADOL HYDROCHLORIDE
     Dosage: MEDICATION ONGOING YES
     Route: 048
  9. ENOXAPARIN SODIUM [Concomitant]
     Active Substance: ENOXAPARIN SODIUM
     Route: 058
     Dates: start: 20220707, end: 20220708
  10. MUCODOX (BELGIUM) [Concomitant]
     Indication: Cough
     Route: 048
     Dates: start: 20220707, end: 2022
  11. MUCODOX (BELGIUM) [Concomitant]
     Route: 048
     Dates: start: 2022
  12. ZOLPIDEM TARTRATE [Concomitant]
     Active Substance: ZOLPIDEM TARTRATE
     Indication: Insomnia
     Route: 048
     Dates: start: 20220707, end: 20220919
  13. ZOLPIDEM TARTRATE [Concomitant]
     Active Substance: ZOLPIDEM TARTRATE
     Dosage: QOD
     Route: 048
     Dates: start: 20220920
  14. TRAZODONE [Concomitant]
     Active Substance: TRAZODONE HYDROCHLORIDE
     Indication: Nausea
     Route: 048
     Dates: end: 20220830
  15. CALCIUM PLUS (BELGIUM) [Concomitant]
     Route: 048
  16. LORLATINIB [Concomitant]
     Active Substance: LORLATINIB
     Dates: start: 20230116, end: 20230421
  17. SERETIDE [Concomitant]
     Active Substance: FLUTICASONE PROPIONATE\SALMETEROL XINAFOATE
     Indication: Hypersensitivity
     Route: 055
     Dates: start: 20221227
  18. SINGULAIR [Concomitant]
     Active Substance: MONTELUKAST SODIUM
     Indication: Hypersensitivity
     Route: 048
     Dates: start: 20221220
  19. EBASTINE [Concomitant]
     Active Substance: EBASTINE
     Indication: Hypersensitivity
     Route: 048
     Dates: start: 20221220
  20. VITAPANTOL [Concomitant]
     Dosage: 1 OTHER
     Route: 061
     Dates: start: 20220729
  21. VITAPANTOL [Concomitant]
     Indication: Nasal crusting
     Route: 061
     Dates: start: 20220729

REACTIONS (9)
  - Alpha-1 antitrypsin deficiency [Recovered/Resolved]
  - Productive cough [Recovering/Resolving]
  - Vomiting [Recovered/Resolved]
  - Insomnia [Not Recovered/Not Resolved]
  - Headache [Recovering/Resolving]
  - Pruritus [Not Recovered/Not Resolved]
  - Anxiety [Recovering/Resolving]
  - Nasal crusting [Recovering/Resolving]
  - Cough [Recovering/Resolving]

NARRATIVE: CASE EVENT DATE: 20220707
